FAERS Safety Report 16191867 (Version 1)
Quarter: 2019Q2

REPORT INFORMATION
  Report Type: Spontaneous
  Country: FR (occurrence: FR)
  Receive Date: 20190412
  Receipt Date: 20190412
  Transmission Date: 20190711
  Serious: Yes (Hospitalization, Other)
  Sender: FDA-Public Use
  Company Number: FR-MYLANLABS-2019M1034273

PATIENT
  Age: 14 Year
  Sex: Female
  Weight: 50 kg

DRUGS (3)
  1. RISPERDAL [Suspect]
     Active Substance: RISPERIDONE
     Indication: PRODUCT USED FOR UNKNOWN INDICATION
     Dosage: 18 DOSAGE FORM, TOTAL
     Route: 048
     Dates: start: 20180211, end: 20180211
  2. PARACETAMOL [Suspect]
     Active Substance: ACETAMINOPHEN
     Indication: PRODUCT USED FOR UNKNOWN INDICATION
     Dosage: 28 GRAM, TOTAL
     Route: 048
     Dates: start: 20180211, end: 20180211
  3. TRAMADOL. [Suspect]
     Active Substance: TRAMADOL
     Indication: PRODUCT USED FOR UNKNOWN INDICATION
     Dosage: 12 DOSAGE FORM, QD
     Route: 048
     Dates: start: 20180211, end: 20180211

REACTIONS (4)
  - Toxicity to various agents [Recovered/Resolved]
  - Miosis [Recovered/Resolved]
  - Pallor [Recovered/Resolved]
  - Suicide attempt [Unknown]

NARRATIVE: CASE EVENT DATE: 20180211
